FAERS Safety Report 7039833-4 (Version None)
Quarter: 2010Q4

REPORT INFORMATION
  Report Type: 
  Country: None (occurrence: None)
  Receive Date: 20101012
  Receipt Date: 20100929
  Transmission Date: 20110411
  Serious: Yes (Hospitalization, Other)
  Sender: FDA-Public Use
  Company Number: US-ELI_LILLY_AND_COMPANY-US201010000127

PATIENT
  Sex: Male

DRUGS (6)
  1. CYMBALTA [Suspect]
     Indication: DEPRESSION
     Dates: end: 20100501
  2. HUMALOG [Suspect]
     Indication: DIABETES MELLITUS
     Dosage: 10 U, 2/D
     Dates: start: 20100908
  3. METFORMIN [Concomitant]
  4. LANTUS [Concomitant]
     Dosage: 30 U, DAILY (1/D)
  5. LANTUS [Concomitant]
     Dosage: UNK, DAILY (1/D)
  6. VICODIN [Concomitant]

REACTIONS (8)
  - BLOOD GLUCOSE INCREASED [None]
  - DIVERTICULITIS [None]
  - JOINT SWELLING [None]
  - LIVER DISORDER [None]
  - NEUROPATHY PERIPHERAL [None]
  - POLLAKIURIA [None]
  - RASH MACULAR [None]
  - RESPIRATORY DISORDER [None]
